FAERS Safety Report 24237703 (Version 1)
Quarter: 2024Q3

REPORT INFORMATION
  Report Type: Spontaneous
  Country: CA (occurrence: CA)
  Receive Date: 20240822
  Receipt Date: 20240822
  Transmission Date: 20241016
  Serious: Yes (Death, Hospitalization, Other)
  Sender: TERSERA THERAPEUTICS
  Company Number: CA-SERB-2024021308

PATIENT

DRUGS (4)
  1. XERMELO [Suspect]
     Active Substance: TELOTRISTAT ETHYL
     Indication: Carcinoid syndrome
     Dosage: 250 MILLIGRAM, Q8H (EACH 8 HR)
     Route: 048
  2. LANREOTIDE ACETATE [Suspect]
     Active Substance: LANREOTIDE ACETATE
     Indication: Gastroenteropancreatic neuroendocrine tumour disease
     Route: 058
  3. ASPIRIN [Concomitant]
     Active Substance: ASPIRIN
     Indication: Product used for unknown indication
     Dosage: 81 MG (FREQUENCY NOT SPECIFIED)
     Route: 065
  4. SYNTHROID [Concomitant]
     Active Substance: LEVOTHYROXINE SODIUM
     Indication: Product used for unknown indication
     Dosage: UNKNOWN
     Route: 065

REACTIONS (14)
  - Body temperature increased [Fatal]
  - Fall [Fatal]
  - Feeling cold [Fatal]
  - General physical health deterioration [Fatal]
  - Heart rate increased [Fatal]
  - Hypertension [Fatal]
  - Hypotension [Fatal]
  - Infection [Fatal]
  - Loss of consciousness [Fatal]
  - Memory impairment [Fatal]
  - Pain [Fatal]
  - Syncope [Fatal]
  - Death [Fatal]
  - Off label use [Fatal]
